FAERS Safety Report 6202729-1 (Version None)
Quarter: 2009Q2

REPORT INFORMATION
  Report Type: 
  Country: None (occurrence: None)
  Receive Date: 20090526
  Receipt Date: 20090518
  Transmission Date: 20091009
  Serious: Yes (Hospitalization, Other)
  Sender: FDA-Public Use
  Company Number: PHEH2005US01890

PATIENT
  Sex: Male
  Weight: 84.7 kg

DRUGS (8)
  1. ZOMETA [Suspect]
     Indication: MULTIPLE MYELOMA
     Dosage: 4 MG QMO
     Route: 042
     Dates: start: 20020301, end: 20041001
  2. AREDIA [Suspect]
     Indication: MULTIPLE MYELOMA
     Dosage: 90MG Q4WK
     Dates: start: 20020101
  3. INFLUENZA VACCINE [Concomitant]
     Dates: start: 20041201
  4. VINCRISTINE [Concomitant]
     Dates: start: 20010101
  5. ADRIAMYCIN RDF [Concomitant]
     Dates: start: 20010101
  6. DECADRON                                /CAN/ [Concomitant]
     Dates: start: 20010101
  7. DECADRON                                /CAN/ [Concomitant]
     Dates: start: 20040101
  8. THALIDOMIDE [Concomitant]

REACTIONS (38)
  - ALVEOLOPLASTY [None]
  - BACK PAIN [None]
  - BONE DEBRIDEMENT [None]
  - BONE DISORDER [None]
  - BONE OPERATION [None]
  - BUNDLE BRANCH BLOCK RIGHT [None]
  - CENTRAL VENOUS CATHETERISATION [None]
  - DIARRHOEA [None]
  - DYSPNOEA [None]
  - ERECTILE DYSFUNCTION [None]
  - GASTROOESOPHAGEAL REFLUX DISEASE [None]
  - GINGIVAL DISORDER [None]
  - GINGIVAL SWELLING [None]
  - HAEMORRHOIDS [None]
  - HERPES ZOSTER [None]
  - HYPERPLASIA [None]
  - HYPOGAMMAGLOBULINAEMIA [None]
  - HYPOTENSION [None]
  - HYPOXIA [None]
  - INFLAMMATION [None]
  - JAW OPERATION [None]
  - NEUTROPENIA [None]
  - OBSTRUCTIVE AIRWAYS DISORDER [None]
  - OSTEOMYELITIS [None]
  - OSTEONECROSIS [None]
  - PANCYTOPENIA [None]
  - PRIMARY SEQUESTRUM [None]
  - PYREXIA [None]
  - RASH [None]
  - RIB FRACTURE [None]
  - SLEEP APNOEA SYNDROME [None]
  - SOFT TISSUE INFLAMMATION [None]
  - SPINAL CORD COMPRESSION [None]
  - STOMATITIS [None]
  - TENDERNESS [None]
  - TOOTH ABSCESS [None]
  - TOOTH EXTRACTION [None]
  - UPPER RESPIRATORY TRACT INFECTION [None]
